FAERS Safety Report 15675778 (Version 1)
Quarter: 2018Q4

REPORT INFORMATION
  Report Type: Spontaneous
  Country: US (occurrence: US)
  Receive Date: 20181129
  Receipt Date: 20181129
  Transmission Date: 20190205
  Serious: Yes (Disabling, Other)
  Sender: FDA-Public Use
  Company Number: None

PATIENT
  Age: 37 Year
  Sex: Male
  Weight: 78.75 kg

DRUGS (6)
  1. BACLOFEN. [Concomitant]
     Active Substance: BACLOFEN
  2. MOTRIN [Concomitant]
     Active Substance: IBUPROFEN
  3. GABAPENTIN. [Concomitant]
     Active Substance: GABAPENTIN
  4. MODAFINIL. [Concomitant]
     Active Substance: MODAFINIL
  5. GILENYA [Suspect]
     Active Substance: FINGOLIMOD HYDROCHLORIDE
     Indication: MULTIPLE SCLEROSIS
     Dosage: ?          QUANTITY:30 CAPSULE(S);?
     Route: 048
     Dates: start: 20140701, end: 20180908
  6. AMPYRA [Concomitant]
     Active Substance: DALFAMPRIDINE

REACTIONS (10)
  - Multiple sclerosis [None]
  - Anhidrosis [None]
  - Sexual dysfunction [None]
  - Gait disturbance [None]
  - Incontinence [None]
  - Dysuria [None]
  - Insomnia [None]
  - Dysphagia [None]
  - Eye infection [None]
  - Weight decreased [None]

NARRATIVE: CASE EVENT DATE: 20150101
